FAERS Safety Report 18446142 (Version 1)
Quarter: 2020Q4

REPORT INFORMATION
  Report Type: Spontaneous
  Country: US (occurrence: US)
  Receive Date: 20201029
  Receipt Date: 20201029
  Transmission Date: 20210114
  Serious: Yes (Disabling, Other)
  Sender: FDA-Public Use
  Company Number: None

PATIENT
  Age: 81 Year
  Sex: Male
  Weight: 71.67 kg

DRUGS (6)
  1. GLIPIZIDE. [Concomitant]
     Active Substance: GLIPIZIDE
  2. FINASTERIDE. [Concomitant]
     Active Substance: FINASTERIDE
  3. METFORMIN HYDROCHLORIDE EXTENDED RELEASE TABLET USP 500MG [Suspect]
     Active Substance: METFORMIN HYDROCHLORIDE
     Indication: DIABETES MELLITUS
     Dosage: ?          QUANTITY:90 DF DOSAGE FORM;?
     Route: 048
     Dates: start: 201808, end: 20200911
  4. VITAMIN D [Concomitant]
     Active Substance: VITAMIN D NOS
  5. TAMSULOSIN [Concomitant]
     Active Substance: TAMSULOSIN
  6. LOW DOSE ASPIRIN [Concomitant]
     Active Substance: ASPIRIN

REACTIONS (4)
  - Arthralgia [None]
  - Pain in extremity [None]
  - Musculoskeletal stiffness [None]
  - Hypoaesthesia [None]

NARRATIVE: CASE EVENT DATE: 201808
